FAERS Safety Report 11072912 (Version 3)
Quarter: 2015Q2

REPORT INFORMATION
  Report Type: Spontaneous
  Country: US (occurrence: US)
  Receive Date: 20150428
  Receipt Date: 20150622
  Transmission Date: 20150821
  Serious: No
  Sender: FDA-Public Use
  Company Number: US-AMGEN-USASL2015039799

PATIENT
  Age: 36 Year
  Sex: Female
  Weight: 84.81 kg

DRUGS (2)
  1. ENBREL [Suspect]
     Active Substance: ETANERCEPT
     Dosage: UNK
     Route: 065
  2. ENBREL [Suspect]
     Active Substance: ETANERCEPT
     Indication: PSORIASIS
     Dosage: 50 MG, BIW
     Route: 058
     Dates: start: 20150303, end: 20150506

REACTIONS (5)
  - Ill-defined disorder [Recovered/Resolved]
  - Treatment failure [Unknown]
  - Hypersensitivity [Not Recovered/Not Resolved]
  - Sinusitis [Recovered/Resolved]
  - Throat irritation [Not Recovered/Not Resolved]

NARRATIVE: CASE EVENT DATE: 201504
